FAERS Safety Report 12772477 (Version 3)
Quarter: 2016Q4

REPORT INFORMATION
  Report Type: Spontaneous
  Country: US (occurrence: US)
  Receive Date: 20160922
  Receipt Date: 20161024
  Transmission Date: 20170207
  Serious: Yes (Other)
  Sender: FDA-Public Use
  Company Number: US-BAYER-2016-183738

PATIENT
  Age: 26 Year
  Sex: Female
  Weight: 89.34 kg

DRUGS (1)
  1. MIRENA [Suspect]
     Active Substance: LEVONORGESTREL
     Indication: CONTRACEPTION
     Dosage: 20 MCG/24HR, CONT
     Route: 015
     Dates: start: 20151208, end: 20160906

REACTIONS (5)
  - Drug ineffective [None]
  - Ruptured ectopic pregnancy [Recovered/Resolved]
  - Ectopic pregnancy with contraceptive device [Recovered/Resolved]
  - Device use issue [None]
  - Adnexa uteri cyst [None]

NARRATIVE: CASE EVENT DATE: 2016
